FAERS Safety Report 20452575 (Version 1)
Quarter: 2022Q1

REPORT INFORMATION
  Report Type: Report from Study
  Country: US (occurrence: None)
  Receive Date: 20220210
  Receipt Date: 20220210
  Transmission Date: 20220423
  Serious: Yes (Hospitalization)
  Sender: FDA-Public Use
  Company Number: US-ROCHE-2746895

PATIENT
  Age: 38 Year
  Sex: Female
  Weight: 77.6 kg

DRUGS (2)
  1. OBINUTUZUMAB [Suspect]
     Active Substance: OBINUTUZUMAB
     Indication: Chronic lymphocytic leukaemia
     Dosage: LAST ADMINISTERED DATE- 16-MAR-2020 TOTAL DOSE ADMINISTRED 1000 MG?100 MG IV ON DAY 1, CYCLE 1?900 M
     Route: 042
     Dates: start: 20191024
  2. IBRUTINIB [Suspect]
     Active Substance: IBRUTINIB
     Indication: Chronic lymphocytic leukaemia
     Dosage: LAST ADMINISTERED DATE- 07-DEC-2020 TOTAL DOSE 19740 MG
     Route: 048
     Dates: start: 20191024

REACTIONS (1)
  - COVID-19 [Recovered/Resolved with Sequelae]

NARRATIVE: CASE EVENT DATE: 20201208
